FAERS Safety Report 9746207 (Version 1)
Quarter: 2013Q4

REPORT INFORMATION
  Report Type: Spontaneous
  Country: US (occurrence: US)
  Receive Date: 20131211
  Receipt Date: 20131211
  Transmission Date: 20140711
  Serious: Yes (Hospitalization, Disabling)
  Sender: FDA-Public Use
  Company Number: GXBR2013US002096

PATIENT
  Age: 60 Year
  Sex: Female
  Weight: 64.4 kg

DRUGS (1)
  1. LORAZEPAM ACTAVIS 0.5MG [Suspect]
     Indication: HYPERTHYROIDISM
     Dosage: 2.07 MG, FIVE TIMES DAILY
     Dates: start: 2007

REACTIONS (5)
  - Extrasystoles [Not Recovered/Not Resolved]
  - Nervous system disorder [Not Recovered/Not Resolved]
  - Palpitations [Not Recovered/Not Resolved]
  - Depression [Not Recovered/Not Resolved]
  - Withdrawal syndrome [Not Recovered/Not Resolved]
